FAERS Safety Report 10731472 (Version 4)
Quarter: 2015Q2

REPORT INFORMATION
  Report Type: Report from Study
  Country: CA (occurrence: CA)
  Receive Date: 20150123
  Receipt Date: 20150521
  Transmission Date: 20150821
  Serious: Yes (Other)
  Sender: FDA-Public Use
  Company Number: CA-ROCHE-1454898

PATIENT
  Age: 69 Year
  Sex: Female

DRUGS (3)
  1. AVASTIN [Suspect]
     Active Substance: BEVACIZUMAB
     Indication: GASTROINTESTINAL CARCINOMA
     Route: 042
     Dates: start: 20140303, end: 20150409
  2. FUROSEMIDE. [Concomitant]
     Active Substance: FUROSEMIDE
  3. SENOKOT [Concomitant]
     Active Substance: SENNOSIDES

REACTIONS (4)
  - White blood cell count decreased [Not Recovered/Not Resolved]
  - Off label use [Unknown]
  - Drug dose omission [Unknown]
  - Lung disorder [Unknown]

NARRATIVE: CASE EVENT DATE: 201407
